FAERS Safety Report 5469695-8 (Version None)
Quarter: 2007Q3

REPORT INFORMATION
  Report Type: 
  Country: None (occurrence: None)
  Receive Date: 20070927
  Receipt Date: 20070921
  Transmission Date: 20080115
  Serious: Yes (Hospitalization)
  Sender: FDA-Public Use
  Company Number: CG-MERCK-0709USA03598

PATIENT
  Age: 23 Year
  Sex: Female

DRUGS (1)
  1. STROMECTOL [Suspect]
     Route: 048
     Dates: start: 20070627

REACTIONS (7)
  - ASTHENIA [None]
  - EYELID OEDEMA [None]
  - HEADACHE [None]
  - HYPOTENSION [None]
  - PULSE PRESSURE ABNORMAL [None]
  - PYREXIA [None]
  - VERTIGO [None]
